FAERS Safety Report 23321131 (Version 1)
Quarter: 2023Q4

REPORT INFORMATION
  Report Type: Spontaneous
  Country: ES (occurrence: None)
  Receive Date: 20231220
  Receipt Date: 20231220
  Transmission Date: 20240110
  Serious: Yes (Other)
  Sender: FDA-Public Use
  Company Number: 2023A283581

PATIENT
  Age: 51 Year

DRUGS (1)
  1. XIGDUO XR [Suspect]
     Active Substance: DAPAGLIFLOZIN PROPANEDIOL\METFORMIN HYDROCHLORIDE
     Indication: Diabetes mellitus
     Dosage: 5MG/850 MG FOR QUITE SOME TIME (2-3 YEARS)
     Route: 048

REACTIONS (6)
  - Poisoning [Recovering/Resolving]
  - Skin irritation [Unknown]
  - Urticaria [Unknown]
  - Pruritus [Unknown]
  - Eating disorder [Unknown]
  - Vomiting [Unknown]
